FAERS Safety Report 16991721 (Version 1)
Quarter: 2019Q4

REPORT INFORMATION
  Report Type: Spontaneous
  Country: US (occurrence: US)
  Receive Date: 20191104
  Receipt Date: 20191104
  Transmission Date: 20200122
  Serious: No
  Sender: FDA-Public Use
  Company Number: US-ROCHE-2207005

PATIENT
  Sex: Male
  Weight: 66.33 kg

DRUGS (6)
  1. OMNIPRED [Concomitant]
     Active Substance: PREDNISOLONE ACETATE
     Dosage: ONGOING: UNKNOWN
     Route: 047
     Dates: start: 20170228
  2. BACTRIM [Concomitant]
     Active Substance: SULFAMETHOXAZOLE\TRIMETHOPRIM
     Dosage: ONGOING: UNKNOWN
     Route: 048
     Dates: start: 20170228
  3. CREON [Concomitant]
     Active Substance: PANCRELIPASE AMYLASE\PANCRELIPASE LIPASE\PANCRELIPASE PROTEASE
     Dosage: ONGOING: UNKNOWN
     Route: 048
     Dates: start: 20170228
  4. FLONASE [Concomitant]
     Active Substance: FLUTICASONE PROPIONATE
     Dosage: ONGOING: UNKNOWN
     Route: 045
     Dates: start: 20170228
  5. ZYRTEC [Concomitant]
     Active Substance: CETIRIZINE HYDROCHLORIDE
     Dosage: ONGOING: UNKNOWN
     Route: 048
     Dates: start: 20170228
  6. PULMOZYME [Suspect]
     Active Substance: DORNASE ALFA
     Indication: PRODUCT USED FOR UNKNOWN INDICATION
     Route: 048
     Dates: start: 20170303

REACTIONS (2)
  - Pyrexia [Unknown]
  - Product dose omission [Unknown]
